FAERS Safety Report 18559150 (Version 1)
Quarter: 2020Q4

REPORT INFORMATION
  Report Type: Spontaneous
  Country: HU (occurrence: HU)
  Receive Date: 20201130
  Receipt Date: 20201130
  Transmission Date: 20210114
  Serious: Yes (Other)
  Sender: FDA-Public Use
  Company Number: HU-ORION CORPORATION ORION PHARMA-20_00011930

PATIENT
  Age: 62 Year
  Sex: Male
  Weight: 110 kg

DRUGS (10)
  1. METHOTREXATE (TRADE NAME UNKNOWN) [Suspect]
     Active Substance: METHOTREXATE
     Indication: PRODUCT USED FOR UNKNOWN INDICATION
     Route: 065
     Dates: start: 2010
  2. SANDIMMUN [Suspect]
     Active Substance: CYCLOSPORINE
     Dosage: QD
     Route: 065
     Dates: start: 2010
  3. SANDIMMUN [Suspect]
     Active Substance: CYCLOSPORINE
     Indication: PRODUCT USED FOR UNKNOWN INDICATION
     Route: 065
  4. USTEKINUMAB [Concomitant]
     Active Substance: USTEKINUMAB
     Route: 065
     Dates: start: 2014
  5. INSULIN [Concomitant]
     Active Substance: INSULIN NOS
     Route: 065
  6. INFLIXIMAB [Suspect]
     Active Substance: INFLIXIMAB
     Indication: PRODUCT USED FOR UNKNOWN INDICATION
     Route: 042
     Dates: start: 2011, end: 2014
  7. ACITRETIN. [Suspect]
     Active Substance: ACITRETIN
     Indication: PRODUCT USED FOR UNKNOWN INDICATION
     Route: 065
  8. METHOTREXATE (TRADE NAME UNKNOWN) [Suspect]
     Active Substance: METHOTREXATE
     Route: 065
  9. PERINDOPRIL [Suspect]
     Active Substance: PERINDOPRIL
     Indication: PRODUCT USED FOR UNKNOWN INDICATION
     Route: 065
  10. ACECLOFENAC [Concomitant]
     Active Substance: ACECLOFENAC
     Dosage: PRN (AS NEEDED)
     Route: 065

REACTIONS (17)
  - Therapeutic response decreased [Unknown]
  - Hypercholesterolaemia [Unknown]
  - Psoriasis [Unknown]
  - Arthropathy [Recovered/Resolved]
  - Drug intolerance [Unknown]
  - Obesity [Unknown]
  - Hypertension [Unknown]
  - Myocardial ischaemia [Unknown]
  - Arthralgia [Recovered/Resolved]
  - Hypertensive crisis [Unknown]
  - Cough [Unknown]
  - Condition aggravated [Unknown]
  - Arthritis [Unknown]
  - Diabetes mellitus [Unknown]
  - Back pain [Recovered/Resolved]
  - Cutaneous symptom [Unknown]
  - Hypertriglyceridaemia [Unknown]

NARRATIVE: CASE EVENT DATE: 2010
